FAERS Safety Report 13641439 (Version 1)
Quarter: 2017Q2

REPORT INFORMATION
  Report Type: Spontaneous
  Country: US (occurrence: US)
  Receive Date: 20170609
  Receipt Date: 20170609
  Transmission Date: 20170830
  Serious: No
  Sender: FDA-Public Use
  Company Number: None

PATIENT
  Age: 59 Year
  Sex: Female

DRUGS (1)
  1. ZEPATIER [Suspect]
     Active Substance: ELBASVIR\GRAZOPREVIR

REACTIONS (7)
  - Hypertension [None]
  - Hypersensitivity [None]
  - Infection [None]
  - Dry throat [None]
  - Dry eye [None]
  - Blood cholesterol increased [None]
  - Headache [None]

NARRATIVE: CASE EVENT DATE: 20170517
